FAERS Safety Report 6255792-6 (Version None)
Quarter: 2009Q3

REPORT INFORMATION
  Report Type: 
  Country: None (occurrence: None)
  Receive Date: 20090703
  Receipt Date: 20090622
  Transmission Date: 20100115
  Serious: Yes (Hospitalization)
  Sender: FDA-Public Use
  Company Number: FR-RANBAXY-2009RR-24433

PATIENT
  Age: 35 Year
  Sex: Male

DRUGS (9)
  1. ZOLPIDEM [Suspect]
     Route: 013
  2. HEPARIN [Concomitant]
  3. ASPIRIN [Concomitant]
  4. BUFLOMEDIL [Concomitant]
     Indication: VASODILATATION
     Route: 042
  5. BUFLOMEDIL [Concomitant]
     Route: 048
  6. MORPHINE [Concomitant]
     Indication: PAIN
  7. PARACETAMOL [Concomitant]
     Indication: PAIN
     Route: 042
  8. PENTOXIFYLLINE [Concomitant]
     Indication: VASODILATATION
  9. NEFOPAM [Concomitant]
     Indication: PAIN

REACTIONS (1)
  - PERIPHERAL ISCHAEMIA [None]
